FAERS Safety Report 9348435 (Version 1)
Quarter: 2013Q2

REPORT INFORMATION
  Report Type: Spontaneous
  Country: FR (occurrence: FR)
  Receive Date: 20130614
  Receipt Date: 20130614
  Transmission Date: 20140414
  Serious: Yes (Hospitalization)
  Sender: FDA-Public Use
  Company Number: FR-BRISTOL-MYERS SQUIBB COMPANY-18994251

PATIENT
  Age: 55 Year
  Sex: Male

DRUGS (8)
  1. REYATAZ CAPS 300 MG [Suspect]
     Indication: HIV INFECTION
     Route: 048
     Dates: start: 201105, end: 20130408
  2. TRUVADA [Suspect]
     Indication: HIV INFECTION
     Dosage: TRUVADA 200 MG/245 MG
     Route: 048
     Dates: start: 201105, end: 20130408
  3. NORVIR [Concomitant]
     Dates: start: 201105
  4. ISOPTINE [Concomitant]
  5. EFFEXOR [Concomitant]
  6. ALPRAZOLAM [Concomitant]
  7. SERESTA [Concomitant]
  8. VITAMIN B12 [Concomitant]

REACTIONS (2)
  - Renal tubular necrosis [Recovered/Resolved with Sequelae]
  - Renal failure acute [Recovered/Resolved with Sequelae]
